FAERS Safety Report 13628677 (Version 1)
Quarter: 2017Q2

REPORT INFORMATION
  Report Type: Spontaneous
  Country: TR (occurrence: TR)
  Receive Date: 20170607
  Receipt Date: 20170607
  Transmission Date: 20170830
  Serious: Yes (Other)
  Sender: FDA-Public Use
  Company Number: TR-BAYER-2017-105040

PATIENT
  Age: 50 Year
  Sex: Female

DRUGS (6)
  1. ALEVE [Suspect]
     Active Substance: NAPROXEN SODIUM
     Indication: PAIN
  2. COLCHICIN [Suspect]
     Active Substance: COLCHICINE
     Indication: PAIN
  3. DOXICYCLIN [Concomitant]
     Active Substance: DOXYCYCLINE
  4. ROSUVASTATIN. [Concomitant]
     Active Substance: ROSUVASTATIN
  5. ACETYLSALICYLIC ACID (} 100 MG) [Suspect]
     Active Substance: ASPIRIN
     Indication: PAIN
  6. FLURBIPROFEN. [Suspect]
     Active Substance: FLURBIPROFEN
     Indication: HEADACHE

REACTIONS (1)
  - Acute febrile neutrophilic dermatosis [Recovered/Resolved]
